FAERS Safety Report 11328135 (Version 1)
Quarter: 2015Q3

REPORT INFORMATION
  Report Type: Report from Study
  Country: IT (occurrence: IT)
  Receive Date: 20150731
  Receipt Date: 20150731
  Transmission Date: 20151125
  Serious: Yes (Hospitalization)
  Sender: FDA-Public Use
  Company Number: IT-BAXALTA-2015BLT000684

PATIENT
  Age: 25 Year
  Sex: Male
  Weight: 112 kg

DRUGS (2)
  1. IRBESARTAN + HIDROCLOROTIAZIDA ACTAVIS [Concomitant]
     Indication: HYPERTENSION
     Dosage: 150 MG, 1X A DAY
     Route: 048
     Dates: start: 20130430
  2. OCTOCOG ALFA; BAXJECT II [Suspect]
     Active Substance: ANTIHEMOPHILIC FACTOR, HUMAN RECOMBINANT
     Indication: FACTOR VIII DEFICIENCY
     Route: 042

REACTIONS (1)
  - Infected skin ulcer [Recovered/Resolved]

NARRATIVE: CASE EVENT DATE: 20130916
